FAERS Safety Report 7410792-5 (Version None)
Quarter: 2011Q2

REPORT INFORMATION
  Report Type: 
  Country: None (occurrence: None)
  Receive Date: 20110413
  Receipt Date: 20110330
  Transmission Date: 20111010
  Serious: Yes (Other)
  Sender: FDA-Public Use
  Company Number: US-RANBAXY-2011RR-43484

PATIENT
  Sex: Male

DRUGS (6)
  1. CIPROFLOXACIN [Suspect]
     Indication: URINARY TRACT INFECTION
     Dosage: 500 MG, BID
     Route: 048
     Dates: start: 20050305
  2. LEVAQUIN [Suspect]
     Indication: DYSURIA
     Dosage: UNK
     Route: 048
     Dates: start: 20060322, end: 20090604
  3. CIPROFLOXACIN [Suspect]
     Indication: PROSTATITIS
  4. LEVAQUIN [Suspect]
     Indication: URINARY TRACT INFECTION
     Dosage: UNK MG, UNK
     Route: 065
  5. LEVAQUIN [Suspect]
  6. LEVAQUIN [Suspect]
     Indication: POLLAKIURIA

REACTIONS (3)
  - DRUG INEFFECTIVE [None]
  - TENDON RUPTURE [None]
  - ROTATOR CUFF SYNDROME [None]
